FAERS Safety Report 24244902 (Version 1)
Quarter: 2024Q3

REPORT INFORMATION
  Report Type: Spontaneous
  Country: US (occurrence: US)
  Receive Date: 20240823
  Receipt Date: 20240823
  Transmission Date: 20241017
  Serious: No
  Sender: UNITED EXCHANGE
  Company Number: US-United Exchange Corporation-2160803

PATIENT
  Age: 54 Year
  Sex: Female

DRUGS (6)
  1. CORALITE MUSCLE AND JOINT PAIN RELIEF (CAMPHOR (SYNTHETIC)\MENTHOL\MET [Suspect]
     Active Substance: CAMPHOR (SYNTHETIC)\MENTHOL\METHYL SALICYLATE
     Indication: Myalgia
     Route: 061
     Dates: start: 20240428, end: 20240428
  2. CORALITE MUSCLE AND JOINT PAIN RELIEF (CAMPHOR (SYNTHETIC)\MENTHOL\MET [Suspect]
     Active Substance: CAMPHOR (SYNTHETIC)\MENTHOL\METHYL SALICYLATE
     Indication: Arthritis
  3. CORALITE MUSCLE AND JOINT PAIN RELIEF (CAMPHOR (SYNTHETIC)\MENTHOL\MET [Suspect]
     Active Substance: CAMPHOR (SYNTHETIC)\MENTHOL\METHYL SALICYLATE
     Indication: Contusion
  4. CORALITE MUSCLE AND JOINT PAIN RELIEF (CAMPHOR (SYNTHETIC)\MENTHOL\MET [Suspect]
     Active Substance: CAMPHOR (SYNTHETIC)\MENTHOL\METHYL SALICYLATE
     Indication: Back pain
  5. CORALITE MUSCLE AND JOINT PAIN RELIEF (CAMPHOR (SYNTHETIC)\MENTHOL\MET [Suspect]
     Active Substance: CAMPHOR (SYNTHETIC)\MENTHOL\METHYL SALICYLATE
     Indication: Muscle strain
  6. CORALITE MUSCLE AND JOINT PAIN RELIEF (CAMPHOR (SYNTHETIC)\MENTHOL\MET [Suspect]
     Active Substance: CAMPHOR (SYNTHETIC)\MENTHOL\METHYL SALICYLATE
     Indication: Ligament sprain

REACTIONS (2)
  - Thermal burn [Unknown]
  - Skin irritation [Unknown]

NARRATIVE: CASE EVENT DATE: 20240428
